FAERS Safety Report 13554354 (Version 3)
Quarter: 2017Q2

REPORT INFORMATION
  Report Type: Spontaneous
  Country: TR (occurrence: TR)
  Receive Date: 20170517
  Receipt Date: 20170629
  Transmission Date: 20170830
  Serious: Yes (Death, Hospitalization, Other)
  Sender: FDA-Public Use
  Company Number: TR-ALEXION-A201705110

PATIENT
  Age: 17 Year
  Sex: Female
  Weight: 65 kg

DRUGS (2)
  1. SOLIRIS [Suspect]
     Active Substance: ECULIZUMAB
     Dosage: 900 MG, UNK
     Route: 042
  2. SOLIRIS [Suspect]
     Active Substance: ECULIZUMAB
     Indication: PAROXYSMAL NOCTURNAL HAEMOGLOBINURIA
     Dosage: 600 MG, UNK (FOR FIRST 4 WEEKS)
     Route: 042
     Dates: start: 20161124

REACTIONS (6)
  - General physical health deterioration [Fatal]
  - Abdominal pain [Recovered/Resolved]
  - Splenic infarction [Fatal]
  - Neutropenia [Unknown]
  - Pulmonary embolism [Fatal]
  - Thrombosis [Fatal]

NARRATIVE: CASE EVENT DATE: 20170319
